FAERS Safety Report 9543712 (Version 1)
Quarter: 2013Q2

REPORT INFORMATION
  Report Type: Spontaneous
  Country: US (occurrence: None)
  Receive Date: 20130524
  Receipt Date: 20130524
  Transmission Date: 20140414
  Serious: Yes (Other)
  Sender: FDA-Public Use
  Company Number: PHEH2012US025116

PATIENT
  Age: 53 Year
  Sex: Female

DRUGS (6)
  1. GILENYA (FINGOLIMOD) CAPSULE, 0.5MG [Suspect]
     Indication: MULTIPLE SCLEROSIS
     Route: 048
     Dates: start: 20120312, end: 201206
  2. BACLOFEN (BACLOFEN) [Concomitant]
  3. DEPAKOTE (VALPROATE SEMISODIUM) [Concomitant]
  4. GABAPENTIN (GABAPENTIN) [Concomitant]
  5. ISONIAZID (ISONIAZID) [Concomitant]
  6. MELATONIN (MELATONIN) [Concomitant]

REACTIONS (2)
  - Impetigo [None]
  - Lymphocyte count decreased [None]
